FAERS Safety Report 14975266 (Version 2)
Quarter: 2018Q3

REPORT INFORMATION
  Report Type: Spontaneous
  Country: FR (occurrence: FR)
  Receive Date: 20180605
  Receipt Date: 20180724
  Transmission Date: 20181010
  Serious: Yes (Death, Other)
  Sender: FDA-Public Use
  Company Number: FR-IMPAX LABORATORIES, INC-2018-IPXL-01871

PATIENT
  Age: 28 Year
  Sex: Male

DRUGS (6)
  1. BACLOFEN. [Suspect]
     Active Substance: BACLOFEN
     Indication: ALCOHOLISM
     Dosage: 10 MG, 40 TABLETS
     Route: 048
  2. OXAZEPAM. [Concomitant]
     Active Substance: OXAZEPAM
     Indication: PRODUCT USED FOR UNKNOWN INDICATION
     Dosage: UNK
     Route: 065
  3. CARBAMAZEPINE. [Concomitant]
     Active Substance: CARBAMAZEPINE
     Indication: PRODUCT USED FOR UNKNOWN INDICATION
     Dosage: UNK
     Route: 065
  4. BACLOFEN. [Suspect]
     Active Substance: BACLOFEN
     Indication: OVERDOSE
     Dosage: UNK
     Route: 065
  5. COCAINE [Suspect]
     Active Substance: COCAINE
     Indication: OVERDOSE
     Dosage: UNK
     Route: 048
  6. ALCOHOL. [Suspect]
     Active Substance: ALCOHOL
     Indication: OVERDOSE
     Dosage: UNK
     Route: 048

REACTIONS (4)
  - Hepatic failure [Unknown]
  - Loss of consciousness [Unknown]
  - Renal failure [Unknown]
  - Intentional overdose [Fatal]
